FAERS Safety Report 22400297 (Version 1)
Quarter: 2023Q2

REPORT INFORMATION
  Report Type: Spontaneous
  Country: FR (occurrence: FR)
  Receive Date: 20230602
  Receipt Date: 20230602
  Transmission Date: 20230721
  Serious: Yes (Hospitalization)
  Sender: FDA-Public Use
  Company Number: None

PATIENT
  Age: 45 Year
  Sex: Male

DRUGS (2)
  1. HALDOL [Suspect]
     Active Substance: HALOPERIDOL
     Indication: Schizophrenia
     Route: 065
     Dates: start: 20230216, end: 20230217
  2. PIPAMPERONE [Suspect]
     Active Substance: PIPAMPERONE
     Indication: Agitation
     Route: 048
     Dates: start: 20230216, end: 20230217

REACTIONS (3)
  - Sedation [Recovered/Resolved]
  - Product label confusion [Recovered/Resolved]
  - Wrong patient received product [Recovered/Resolved]

NARRATIVE: CASE EVENT DATE: 20230216
